FAERS Safety Report 21955459 (Version 3)
Quarter: 2024Q1

REPORT INFORMATION
  Report Type: Spontaneous
  Country: US (occurrence: US)
  Receive Date: 20230206
  Receipt Date: 20240116
  Transmission Date: 20240410
  Serious: No
  Sender: FDA-Public Use
  Company Number: US-BIOGEN-2023BI01185054

PATIENT
  Sex: Female

DRUGS (3)
  1. TYSABRI [Suspect]
     Active Substance: NATALIZUMAB
     Indication: Multiple sclerosis
     Dosage: INFUSE OVER 1 HOUR
     Route: 050
     Dates: start: 20200410
  2. TYSABRI [Suspect]
     Active Substance: NATALIZUMAB
     Dosage: INFUSE OVER 1 HOUR
     Route: 050
     Dates: start: 20140905, end: 20180724
  3. TYSABRI [Suspect]
     Active Substance: NATALIZUMAB
     Route: 050
     Dates: start: 20210723

REACTIONS (4)
  - Attention deficit hyperactivity disorder [Unknown]
  - Connective tissue disorder [Not Recovered/Not Resolved]
  - Feeling abnormal [Unknown]
  - Multiple sclerosis [Recovered/Resolved]
